FAERS Safety Report 4974892-1 (Version None)
Quarter: 2006Q1

REPORT INFORMATION
  Report Type: 
  Country: None (occurrence: None)
  Receive Date: 20060227
  Receipt Date: 20060117
  Transmission Date: 20060701
  Serious: No
  Sender: FDA-Public Use
  Company Number: PHEH2006US01085

PATIENT
  Age: 49 Year
  Sex: Female

DRUGS (1)
  1. ENABLEX [Suspect]
     Dosage: SEE IMAGE
     Route: 048

REACTIONS (4)
  - DRUG INEFFECTIVE [None]
  - DRY MOUTH [None]
  - EYE PRURITUS [None]
  - OCULAR HYPERAEMIA [None]
